FAERS Safety Report 5432144-X (Version None)
Quarter: 2007Q3

REPORT INFORMATION
  Report Type: 
  Country: None (occurrence: None)
  Receive Date: 20070830
  Receipt Date: 20070822
  Transmission Date: 20080115
  Serious: Yes (Hospitalization)
  Sender: FDA-Public Use
  Company Number: US-PFIZER INC-2007049966

PATIENT
  Sex: Female
  Weight: 69.9 kg

DRUGS (8)
  1. SU-011,248 [Suspect]
     Indication: RENAL CELL CARCINOMA STAGE UNSPECIFIED
     Route: 048
  2. DYAZIDE [Suspect]
     Dosage: FREQ:PRN
     Route: 048
     Dates: start: 20061102, end: 20070618
  3. PROTONIX [Concomitant]
     Route: 048
  4. CARDIZEM CD [Concomitant]
     Route: 048
  5. SOLU-CORTEF [Concomitant]
     Route: 048
  6. SOLU-CORTEF [Concomitant]
     Route: 048
  7. SYNTHROID [Concomitant]
     Route: 048
  8. TENORMIN [Concomitant]
     Route: 048
     Dates: start: 20060519

REACTIONS (2)
  - BRADYCARDIA [None]
  - HYPONATRAEMIA [None]
